FAERS Safety Report 9026391 (Version 4)
Quarter: 2013Q1

REPORT INFORMATION
  Report Type: Spontaneous
  Country: JP (occurrence: JP)
  Receive Date: 20130123
  Receipt Date: 20130315
  Transmission Date: 20140127
  Serious: Yes (Hospitalization)
  Sender: FDA-Public Use
  Company Number: PHHY2013JP005834

PATIENT
  Age: 86 Year
  Sex: Male
  Weight: 48 kg

DRUGS (7)
  1. FAMVIR [Suspect]
     Indication: HERPES ZOSTER
     Dosage: 500 MG, BID
     Route: 048
     Dates: start: 20130111, end: 20130114
  2. ARICEPT [Concomitant]
     Dosage: 5 MG
     Route: 048
     Dates: start: 201101, end: 20130114
  3. MUCOSTA [Concomitant]
     Dosage: 300 MG, UNK
     Route: 048
     Dates: start: 201101, end: 20130114
  4. SUPRAN NICHIIKO [Concomitant]
     Dosage: 150 MG, UNK
     Route: 048
     Dates: start: 201101, end: 20130114
  5. ALOSITOL [Concomitant]
     Dosage: 50 MG, UNK
     Route: 048
     Dates: start: 201101, end: 20130114
  6. LASIX [Concomitant]
     Dosage: 20 MG, UNK
     Route: 048
     Dates: start: 201101, end: 20130114
  7. WARFARIN [Concomitant]
     Dosage: 1 MG, UNK
     Route: 048
     Dates: start: 201101, end: 20130114

REACTIONS (4)
  - Dysarthria [Recovered/Resolved]
  - Abnormal behaviour [Recovered/Resolved]
  - Altered state of consciousness [Recovered/Resolved]
  - Somnolence [Recovered/Resolved]
